FAERS Safety Report 16433240 (Version 1)
Quarter: 2019Q2

REPORT INFORMATION
  Report Type: Spontaneous
  Country: US (occurrence: US)
  Receive Date: 20190614
  Receipt Date: 20190614
  Transmission Date: 20190711
  Serious: No
  Sender: FDA-Public Use
  Company Number: US-JNJFOC-20170424004

PATIENT
  Sex: Female

DRUGS (19)
  1. IMBRUVICA [Suspect]
     Active Substance: IBRUTINIB
     Indication: B-CELL SMALL LYMPHOCYTIC LYMPHOMA
     Route: 048
     Dates: start: 20161028
  2. LORATADINE. [Concomitant]
     Active Substance: LORATADINE
  3. OMEPRAZOLE. [Concomitant]
     Active Substance: OMEPRAZOLE
  4. OMEGA-3 FATTY ACIDS [Concomitant]
     Active Substance: OMEGA-3 FATTY ACIDS
  5. DIPHENHYDRAMINE HCL [Concomitant]
     Active Substance: DIPHENHYDRAMINE HYDROCHLORIDE
  6. LOW DOSE ASPIRIN [Concomitant]
     Active Substance: ASPIRIN
  7. MELATONIN [Concomitant]
     Active Substance: MELATONIN
  8. MULTIVITAMINS [Concomitant]
     Active Substance: VITAMINS
  9. BIFIDOBACTERIUM LACTIS [Concomitant]
     Active Substance: BIFIDOBACTERIUM ANIMALIS LACTIS
  10. ATORVASTATIN [Concomitant]
     Active Substance: ATORVASTATIN
  11. TURMERIC [Concomitant]
     Active Substance: HERBALS\TURMERIC
  12. RESTASIS [Concomitant]
     Active Substance: CYCLOSPORINE
  13. BRIMONIDINE [Concomitant]
     Active Substance: BRIMONIDINE TARTRATE
  14. NAPROXEN. [Concomitant]
     Active Substance: NAPROXEN
  15. DOXYCYCLINE. [Concomitant]
     Active Substance: DOXYCYCLINE
  16. LATANOPROST. [Concomitant]
     Active Substance: LATANOPROST
  17. CALCIUM CITRATE [Concomitant]
     Active Substance: CALCIUM CITRATE
  18. LOSARTAN. [Concomitant]
     Active Substance: LOSARTAN
  19. DORZOLAMIDE [Concomitant]
     Active Substance: DORZOLAMIDE

REACTIONS (1)
  - Peripheral swelling [Unknown]
